FAERS Safety Report 25656391 (Version 1)
Quarter: 2025Q3

REPORT INFORMATION
  Report Type: Spontaneous
  Country: JP (occurrence: JP)
  Receive Date: 20250807
  Receipt Date: 20250807
  Transmission Date: 20251020
  Serious: Yes (Hospitalization, Other)
  Sender: MERCK SHARP & DOHME LLC
  Company Number: JP-ONO-2023JP016587AA

PATIENT
  Age: 89 Year
  Sex: Male

DRUGS (13)
  1. SITAGLIPTIN PHOSPHATE [Suspect]
     Active Substance: SITAGLIPTIN PHOSPHATE
     Indication: Type 2 diabetes mellitus
     Dosage: DOSE DESCRIPTION : 100 MG, EVERYDAY?DAILY DOSE : 100 MILLIGRAM?REGIMEN DOSE : 40700  MILLIGRAM
     Route: 048
     Dates: start: 20201115, end: 20211226
  2. GLIMEPIRIDE [Concomitant]
     Active Substance: GLIMEPIRIDE
     Dosage: DOSE DESCRIPTION : 0.5 MG, EVERYDAY?DAILY DOSE : 0.5 MILLIGRAM
     Route: 048
     Dates: start: 20201115
  3. PRASUGREL HYDROCHLORIDE [Concomitant]
     Active Substance: PRASUGREL HYDROCHLORIDE
     Dosage: DOSE DESCRIPTION : 2.5 MG, EVERYDAY?DAILY DOSE : 2.5 MILLIGRAM
     Route: 048
  4. PITAVASTATIN CALCIUM [Concomitant]
     Active Substance: PITAVASTATIN CALCIUM
     Dosage: DOSE DESCRIPTION : 2 MG, EVERYDAY?DAILY DOSE : 2 MILLIGRAM
     Route: 048
  5. FEXOFENADINE HYDROCHLORIDE [Concomitant]
     Active Substance: FEXOFENADINE HYDROCHLORIDE
     Dosage: DOSE DESCRIPTION : 120 MG, EVERYDAY?DAILY DOSE : 120 MILLIGRAM
     Route: 048
  6. AZELNIDIPINE [Concomitant]
     Active Substance: AZELNIDIPINE
     Dosage: DOSE DESCRIPTION : 16 MG, EVERYDAY?DAILY DOSE : 16 MILLIGRAM
     Route: 048
  7. NIFEDIPINE [Concomitant]
     Active Substance: NIFEDIPINE
     Dosage: DOSE DESCRIPTION : 40 MG, EVERYDAY?DAILY DOSE : 40 MILLIGRAM
     Route: 048
  8. ASPIRIN [Concomitant]
     Active Substance: ASPIRIN
     Dosage: DOSE DESCRIPTION : 100 MG, EVERYDAY?DAILY DOSE : 100 MILLIGRAM
     Route: 048
  9. ASPIRIN [Concomitant]
     Active Substance: ASPIRIN
     Route: 048
  10. DOXAZOSIN [Concomitant]
     Active Substance: DOXAZOSIN MESYLATE
     Dosage: DOSE DESCRIPTION : 2 MG, EVERYDAY?DAILY DOSE : 2 MILLIGRAM
     Route: 048
  11. AZILSARTAN KAMEDOXOMIL [Concomitant]
     Active Substance: AZILSARTAN KAMEDOXOMIL
     Dosage: DOSE DESCRIPTION : 40 MG, EVERYDAY?DAILY DOSE : 40 MILLIGRAM
     Route: 048
  12. AZOSEMIDE [Concomitant]
     Active Substance: AZOSEMIDE
     Dosage: DOSE DESCRIPTION : 30 MG, EVERYDAY?DAILY DOSE : 30 MILLIGRAM
     Route: 048
  13. SPIRONOLACTONE [Concomitant]
     Active Substance: SPIRONOLACTONE
     Dosage: DOSE DESCRIPTION : 25 MG, EVERYDAY?DAILY DOSE : 25 MILLIGRAM
     Route: 048

REACTIONS (3)
  - Pemphigus [Recovering/Resolving]
  - Pemphigoid [Recovering/Resolving]
  - Dehydration [Unknown]

NARRATIVE: CASE EVENT DATE: 20211201
